FAERS Safety Report 23889133 (Version 2)
Quarter: 2024Q3

REPORT INFORMATION
  Report Type: Spontaneous
  Country: US (occurrence: None)
  Receive Date: 20240523
  Receipt Date: 20240906
  Transmission Date: 20241016
  Serious: Yes (Hospitalization)
  Sender: DOMPE FARMACEUTICI
  Company Number: US-FARMAPROD-202404-1335

PATIENT
  Sex: Female
  Weight: 63.32 kg

DRUGS (14)
  1. OXERVATE [Suspect]
     Active Substance: CENEGERMIN-BKBJ
     Indication: Neurotrophic keratopathy
     Route: 047
     Dates: start: 20240208
  2. ACETAMINOPHEN\HYDROCODONE [Concomitant]
     Active Substance: ACETAMINOPHEN\HYDROCODONE
  3. PREGABALIN [Concomitant]
     Active Substance: PREGABALIN
  4. METHOCARBAMOL [Concomitant]
     Active Substance: METHOCARBAMOL
  5. NEURONTIN [Concomitant]
     Active Substance: GABAPENTIN
  6. LEVOTHYROXINE SODIUM [Concomitant]
     Active Substance: LEVOTHYROXINE SODIUM
  7. LATANOPROST [Concomitant]
     Active Substance: LATANOPROST
  8. ASPIRIN [Concomitant]
     Active Substance: ASPIRIN
  9. NOVOLOG [Concomitant]
     Active Substance: INSULIN ASPART
     Dosage: VIAL
  10. LOSARTAN POTASSIUM [Concomitant]
     Active Substance: LOSARTAN POTASSIUM
  11. TRAMADOL HCL [Concomitant]
     Active Substance: TRAMADOL HYDROCHLORIDE
  12. FLUTICASONE PROPIONATE [Concomitant]
     Active Substance: FLUTICASONE PROPIONATE
  13. FAMOTIDINE [Concomitant]
     Active Substance: FAMOTIDINE
  14. LIDOCAINE [Concomitant]
     Active Substance: LIDOCAINE
     Dosage: ADHESIVE PATCH

REACTIONS (2)
  - Hospitalisation [Unknown]
  - Fall [Unknown]
